FAERS Safety Report 16000822 (Version 1)
Quarter: 2019Q1

REPORT INFORMATION
  Report Type: Spontaneous
  Country: US (occurrence: US)
  Receive Date: 20190225
  Receipt Date: 20190225
  Transmission Date: 20190418
  Serious: No
  Sender: FDA-Public Use
  Company Number: US-TEVA-2019-US-1007526

PATIENT
  Age: 31 Year
  Sex: Female

DRUGS (2)
  1. ELIDEL [Suspect]
     Active Substance: PIMECROLIMUS
     Route: 065
  2. MUPIROCIN. [Suspect]
     Active Substance: MUPIROCIN
     Route: 065

REACTIONS (1)
  - Dermatitis contact [Recovering/Resolving]
